FAERS Safety Report 15365651 (Version 1)
Quarter: 2018Q3

REPORT INFORMATION
  Report Type: Spontaneous
  Country: AR (occurrence: AR)
  Receive Date: 20180910
  Receipt Date: 20180910
  Transmission Date: 20181010
  Serious: Yes (Other)
  Sender: FDA-Public Use
  Company Number: AR-STRIDES ARCOLAB LIMITED-2018SP007485

PATIENT

DRUGS (1)
  1. VANCOMYCIN [Suspect]
     Active Substance: VANCOMYCIN
     Indication: PRODUCT USED FOR UNKNOWN INDICATION
     Dosage: UNK
     Route: 065

REACTIONS (12)
  - Purpura [Recovered/Resolved]
  - Epstein-Barr virus infection [Unknown]
  - Renal failure [Recovered/Resolved]
  - Skin exfoliation [Recovered/Resolved]
  - Eosinophilia [Recovered/Resolved]
  - Parvovirus B19 infection [Unknown]
  - Hepatic failure [Recovered/Resolved]
  - Drug reaction with eosinophilia and systemic symptoms [Recovered/Resolved]
  - Pyrexia [Recovered/Resolved]
  - Rash morbilliform [Recovered/Resolved]
  - Oedema [Recovered/Resolved]
  - Rash macular [Recovered/Resolved]
